FAERS Safety Report 7421192-6 (Version None)
Quarter: 2011Q2

REPORT INFORMATION
  Report Type: 
  Country: None (occurrence: None)
  Receive Date: 20110407
  Receipt Date: 20110301
  Transmission Date: 20111010
  Serious: Yes (Hospitalization)
  Sender: FDA-Public Use
  Company Number: 113655

PATIENT
  Age: 51 Year
  Sex: Male
  Weight: 95 kg

DRUGS (1)
  1. ETOPOSIDE [Suspect]
     Indication: NON-SMALL CELL LUNG CANCER
     Dosage: 112 MG, IV DAYS 1-5
     Route: 042
     Dates: start: 20110124, end: 20110128

REACTIONS (12)
  - PNEUMONIA [None]
  - PANCYTOPENIA [None]
  - SEPSIS [None]
  - CONSTIPATION [None]
  - CONDITION AGGRAVATED [None]
  - FEBRILE NEUTROPENIA [None]
  - RADIATION OESOPHAGITIS [None]
  - VOMITING [None]
  - RENAL FAILURE ACUTE [None]
  - HEADACHE [None]
  - EMPHYSEMA [None]
  - TINNITUS [None]
